FAERS Safety Report 5807873-6 (Version None)
Quarter: 2008Q3

REPORT INFORMATION
  Report Type: 
  Country: None (occurrence: None)
  Receive Date: 20080711
  Receipt Date: 20080708
  Transmission Date: 20090109
  Serious: Yes (Life-Threatening, Hospitalization, Disabling)
  Sender: FDA-Public Use
  Company Number: PE-BOEHRINGER INGELHEIM GMBH, GERMANY-2008-BP-10638PB

PATIENT
  Sex: Female

DRUGS (1)
  1. SIFROL TABLETS [Suspect]
     Indication: PARKINSON'S DISEASE
     Route: 048

REACTIONS (1)
  - CONVULSION [None]
